FAERS Safety Report 4810869-4 (Version None)
Quarter: 2005Q4

REPORT INFORMATION
  Report Type: 
  Country: None (occurrence: None)
  Receive Date: 20051027
  Receipt Date: 20051012
  Transmission Date: 20060501
  Serious: Yes (Disabling)
  Sender: FDA-Public Use
  Company Number: 2005AP05370

PATIENT
  Age: 78 Year
  Sex: Female

DRUGS (2)
  1. MARCAINE [Suspect]
     Indication: NERVE BLOCK
     Dosage: 3 ML OF 0.25 % AND 0.5 ML DEXAMETHASONE
     Route: 047
  2. DEXAMETHASONE [Concomitant]
     Indication: NERVE BLOCK
     Dosage: 0.5 ML WITH 3 ML OF 0.25 % BUPIVACAINE

REACTIONS (6)
  - BLINDNESS [None]
  - EYEBALL RUPTURE [None]
  - IATROGENIC INJURY [None]
  - PROCEDURAL COMPLICATION [None]
  - RETINAL DETACHMENT [None]
  - RETINAL HAEMORRHAGE [None]
